FAERS Safety Report 10265179 (Version 1)
Quarter: 2014Q2

REPORT INFORMATION
  Report Type: Spontaneous
  Country: US (occurrence: None)
  Receive Date: 20140625
  Receipt Date: 20140625
  Transmission Date: 20141212
  Serious: Yes (Hospitalization)
  Sender: FDA-Public Use
  Company Number: None

PATIENT
  Age: 80 Year
  Sex: Female
  Weight: 70.2 kg

DRUGS (5)
  1. CARBOPLATIN [Suspect]
  2. PACLITAXEL (TAXOL) [Suspect]
  3. BACTRIM [Concomitant]
  4. FENTANYL [Concomitant]
  5. VERSED [Concomitant]

REACTIONS (2)
  - Nausea [None]
  - Vomiting [None]
